FAERS Safety Report 10037594 (Version 2)
Quarter: 2015Q1

REPORT INFORMATION
  Report Type: Spontaneous
  Country: US (occurrence: None)
  Receive Date: 20140324
  Receipt Date: 20150226
  Transmission Date: 20150720
  Serious: Yes (Hospitalization)
  Sender: FDA-Public Use
  Company Number: UTC-045925

PATIENT
  Age: 73 Year
  Sex: Male

DRUGS (16)
  1. PREDNISONE (PREDNISONE) [Concomitant]
     Active Substance: PREDNISONE
  2. ACCUPRIL [Concomitant]
     Active Substance: QUINAPRIL HYDROCHLORIDE
  3. ALBUTEROL /00139501/ (SALBUTAMOL) [Concomitant]
     Active Substance: ALBUTEROL
  4. SPIRIVA (TIOTROPIUM BROMIDE) [Concomitant]
  5. POTASSIUM (POTASSIUM) [Concomitant]
     Active Substance: POTASSIUM
  6. WARFARIN (WARFARIN) [Concomitant]
     Active Substance: WARFARIN
  7. LETAIRIS [Concomitant]
     Active Substance: AMBRISENTAN
  8. LASIX [Concomitant]
     Active Substance: FUROSEMIDE
  9. CHONDROITIN SULFATE (BOVINE)\GLUCOSAMINE SULFATE [Concomitant]
     Active Substance: CHONDROITIN SULFATE (BOVINE)\GLUCOSAMINE SULFATE
  10. JANUVIA [Concomitant]
     Active Substance: SITAGLIPTIN PHOSPHATE
  11. ADCIRCA [Concomitant]
     Active Substance: TADALAFIL
  12. TYVASO [Suspect]
     Active Substance: TREPROSTINIL
     Indication: PULMONARY ARTERIAL HYPERTENSION
     Dosage: (54 MCG, 4 IN 1 D)
     Route: 055
     Dates: start: 20110505
  13. OMEGA 3 /01334101/ (FISH OIL) [Concomitant]
  14. QVAR (BECLOMETASONE DIPROPIONATE) [Concomitant]
  15. METFORMIN [Concomitant]
     Active Substance: METFORMIN HYDROCHLORIDE
  16. MULTIVITAMIN (ASCORBIC ACID, ERGOCALCIFEROL, FOLIC ACID, NICOTINAMIDE, PANTHENOL, RETINOL, RIBOBLAVIN, THIAMINE HYDROCHLORIDE)) [Concomitant]

REACTIONS (4)
  - Nasal septum perforation [None]
  - Anaemia [None]
  - Epistaxis [None]
  - Transfusion [None]

NARRATIVE: CASE EVENT DATE: 20131121
